FAERS Safety Report 5646409-X (Version None)
Quarter: 2008Q1

REPORT INFORMATION
  Report Type: 
  Country: None (occurrence: None)
  Receive Date: 20080229
  Receipt Date: 20080229
  Transmission Date: 20080703
  Serious: No
  Sender: FDA-Public Use
  Company Number: None

PATIENT

DRUGS (2)
  1. MAGNESIUM SULFATE [Suspect]
     Indication: MINERAL SUPPLEMENTATION
     Dosage: 1 GRAM IN 100 ML PREMIX IV BOLUS 1 DOSE
     Route: 040
     Dates: start: 20080226, end: 20080226
  2. MAGNESIUM SULFATE [Suspect]
     Dosage: 4 GRAM IN 100 ML PREMIX IV BOLUS
     Route: 040

REACTIONS (2)
  - INCORRECT DOSE ADMINISTERED [None]
  - MEDICATION ERROR [None]
